FAERS Safety Report 24981686 (Version 3)
Quarter: 2025Q1

REPORT INFORMATION
  Report Type: Spontaneous
  Country: ES (occurrence: ES)
  Receive Date: 20250218
  Receipt Date: 20250228
  Transmission Date: 20250408
  Serious: No
  Sender: TAKEDA
  Company Number: ES-TAKEDA-2025TUS015837

PATIENT
  Sex: Female

DRUGS (5)
  1. HUMAN IMMUNOGLOBULIN G [Suspect]
     Active Substance: HUMAN IMMUNOGLOBULIN G
     Indication: Cytomegalovirus infection
  2. MARIBAVIR [Suspect]
     Active Substance: MARIBAVIR
     Indication: Cytomegalovirus infection
     Dosage: 400 MILLIGRAM, Q12H
  3. GANCICLOVIR [Concomitant]
     Active Substance: GANCICLOVIR
  4. FOSCARNET [Concomitant]
     Active Substance: FOSCARNET
     Dosage: 90 MILLIGRAM/KILOGRAM, Q12H
  5. FOSCARNET [Concomitant]
     Active Substance: FOSCARNET
     Dosage: 90 MILLIGRAM/KILOGRAM, QD

REACTIONS (4)
  - Abdominal discomfort [Unknown]
  - Dysgeusia [Unknown]
  - Diarrhoea [Unknown]
  - Product use in unapproved indication [Unknown]
